FAERS Safety Report 26203910 (Version 1)
Quarter: 2025Q4

REPORT INFORMATION
  Report Type: Spontaneous
  Country: US (occurrence: None)
  Receive Date: 20251224
  Receipt Date: 20251224
  Transmission Date: 20260117
  Serious: Yes (unspecified)
  Sender: FDA-CTU
  Company Number: None

PATIENT
  Age: 29 Year
  Sex: Female
  Weight: 56.25 kg

DRUGS (3)
  1. QULIPTA [Suspect]
     Active Substance: ATOGEPANT
     Indication: Migraine
     Dates: start: 20210301, end: 20250811
  2. VITAMIN B2 [Concomitant]
     Active Substance: RIBOFLAVIN
  3. VITAMIN C [Concomitant]
     Active Substance: ASCORBIC ACID

REACTIONS (4)
  - Blood triglycerides increased [None]
  - Blood cholesterol increased [None]
  - Low density lipoprotein increased [None]
  - Hepatic steatosis [None]

NARRATIVE: CASE EVENT DATE: 20250812
